FAERS Safety Report 20674200 (Version 1)
Quarter: 2022Q2

REPORT INFORMATION
  Report Type: Spontaneous
  Country: US (occurrence: US)
  Receive Date: 20220405
  Receipt Date: 20220405
  Transmission Date: 20220721
  Serious: No
  Sender: FDA-Public Use
  Company Number: US-GALDERMA-US2022003759

PATIENT

DRUGS (5)
  1. PROACTIV MD ADAPALENE ACNE TREATMENT [Suspect]
     Active Substance: ADAPALENE
     Indication: Tinea versicolour
     Dosage: 1 DOSAGE FORM, QD, ONLY AT NIGHT
     Route: 061
     Dates: start: 202202
  2. Proactiv MD Ultra Gentle Cleanser [Concomitant]
     Indication: Tinea versicolour
     Dosage: 1 DOSAGE FORM, QD, DAILY
     Route: 061
     Dates: start: 202202
  3. Proactiv MD Ultra Hydrating Moisturizer [Concomitant]
     Indication: Tinea versicolour
     Dosage: 1 DOSAGE FORM, QD, DAILY
     Route: 061
     Dates: start: 202202
  4. PROACTIV ACNE BODY WASH [Concomitant]
     Active Substance: SALICYLIC ACID
     Indication: Tinea versicolour
     Dosage: 1 DOSAGE FORM, QD, DAILY
     Route: 061
     Dates: start: 202202
  5. Proactiv Amazonian Clay Mask [Concomitant]
     Indication: Tinea versicolour
     Dosage: 1 DOSAGE FORM, QD, DAILY
     Route: 061
     Dates: start: 202202

REACTIONS (6)
  - Acne [Unknown]
  - Dermatitis [Unknown]
  - Dry skin [Unknown]
  - Skin exfoliation [Recovering/Resolving]
  - Skin swelling [Unknown]
  - Product use in unapproved indication [Recovered/Resolved]

NARRATIVE: CASE EVENT DATE: 20220201
